FAERS Safety Report 7422605-6 (Version None)
Quarter: 2011Q2

REPORT INFORMATION
  Report Type: 
  Country: None (occurrence: None)
  Receive Date: 20110408
  Receipt Date: 20110328
  Transmission Date: 20111010
  Serious: Yes (Hospitalization)
  Sender: FDA-Public Use
  Company Number: ABR_00031_2011

PATIENT
  Age: 84 Year
  Sex: Female

DRUGS (5)
  1. VALSARTAN  AND HYDROCHLOROTHIAZIDE [Suspect]
     Indication: HYPERTENSION
     Dosage: (1 DF DOSAGE FORM 1/1 DAY ORAL)
     Route: 048
  2. GLYBURIDE [Concomitant]
  3. ASPIRIN [Concomitant]
  4. GLYCERYL TRINITRATE (GLYCEROLTRINITRAT SUBLINGUAL SPRAY) [Suspect]
     Indication: PRODUCT USED FOR UNKNOWN INDICATION
     Dosage: (1 DF DOSAGE FORM 1/1 AS NECESSARY SUBLINGUAL)
     Route: 060
  5. BISOPROLOL FUMARATE [Suspect]
     Indication: HYPERTENSION
     Dosage: (2/1 DAY ORAL)
     Route: 048

REACTIONS (5)
  - MALAISE [None]
  - SYNCOPE [None]
  - HYPERHIDROSIS [None]
  - TACHYARRHYTHMIA [None]
  - ATRIAL FIBRILLATION [None]
